FAERS Safety Report 16831401 (Version 1)
Quarter: 2019Q3

REPORT INFORMATION
  Report Type: Spontaneous
  Country: US (occurrence: US)
  Receive Date: 20190920
  Receipt Date: 20190920
  Transmission Date: 20191005
  Serious: Yes (Hospitalization, Other)
  Sender: FDA-Public Use
  Company Number: US-ZYDUS-040804

PATIENT
  Age: 72 Year
  Sex: Female

DRUGS (8)
  1. METOPROLOL/METOPROLOL FUMARATE/METOPROLOL SUCCINATE/METOPROLOL TARTRATE [Suspect]
     Active Substance: METOPROLOL
     Indication: PRODUCT USED FOR UNKNOWN INDICATION
     Dosage: 25 MG TWICE A DAY
     Route: 065
  2. ATORVASTATIN [Concomitant]
     Active Substance: ATORVASTATIN
     Indication: PRODUCT USED FOR UNKNOWN INDICATION
     Route: 065
  3. INSULIN LISPRO/INSULIN LISPRO PROTAMINE SUSPENSION [Concomitant]
     Indication: PRODUCT USED FOR UNKNOWN INDICATION
     Dosage: 40 UNITS EVERY MORNING AND 60 UNITS EVERY EVENING
     Route: 065
  4. NIFEDIPINE. [Interacting]
     Active Substance: NIFEDIPINE
     Indication: PRODUCT USED FOR UNKNOWN INDICATION
     Dosage: NIFEDIPINE XL 60 MG DAILY
     Route: 065
  5. CLARITHROMYCIN. [Interacting]
     Active Substance: CLARITHROMYCIN
     Indication: BRONCHITIS
     Dosage: 500 MG TWICE A DAY
     Route: 065
  6. PAROXETINE. [Concomitant]
     Active Substance: PAROXETINE
     Indication: PRODUCT USED FOR UNKNOWN INDICATION
     Dosage: 20 MG DAILY
     Route: 065
  7. PREDNISONE. [Concomitant]
     Active Substance: PREDNISONE
     Indication: BRONCHITIS
     Dosage: 20 MG 4 TIMES A DAY
     Route: 065
  8. LOSARTAN. [Concomitant]
     Active Substance: LOSARTAN
     Indication: PRODUCT USED FOR UNKNOWN INDICATION
     Dosage: 100 MG DAILY
     Route: 065

REACTIONS (9)
  - Cardiac arrest [Recovered/Resolved]
  - Dizziness [Recovered/Resolved]
  - Hypoperfusion [Recovered/Resolved]
  - Acidosis [Recovered/Resolved]
  - Nodal arrhythmia [Recovered/Resolved]
  - Drug interaction [Unknown]
  - Hypotension [Recovered/Resolved]
  - Hypovolaemic shock [Recovered/Resolved]
  - Pulseless electrical activity [Recovered/Resolved]
